FAERS Safety Report 6760059-3 (Version None)
Quarter: 2010Q2

REPORT INFORMATION
  Report Type: 
  Country: None (occurrence: None)
  Receive Date: 20100604
  Receipt Date: 20100520
  Transmission Date: 20101027
  Serious: Yes (Life-Threatening, Hospitalization)
  Sender: FDA-Public Use
  Company Number: 220001N04FRA

PATIENT
  Age: 25 Year
  Sex: Female
  Weight: 78.6 kg

DRUGS (11)
  1. SAIZEN [Suspect]
     Indication: ENDOCRINE DISORDER
     Dosage: 0.2 MG, 1 IN 1 D, SUBCUTANEOUS
     Route: 058
     Dates: start: 20040227, end: 20040809
  2. SAIZEN [Suspect]
     Indication: ENDOCRINE DISORDER
     Dosage: 0.2 MG, 1 IN 1 D, SUBCUTANEOUS
     Route: 058
     Dates: start: 20050125
  3. LEVOTHYROX (LEVOTHYROXINE) [Concomitant]
  4. HYDROCORTONE [Concomitant]
  5. MINIRIN (DESMOPRESSION ACETATE) [Concomitant]
  6. PAROXETINE HYDROCHLORIDE [Concomitant]
  7. XENICAL [Concomitant]
  8. MINIDRIL (EUGYNON /00022701/) [Concomitant]
  9. VALIUM [Concomitant]
  10. LOXAPINE SUCCINATE [Concomitant]
  11. SPASMINE (SPASMINE /01561701/) [Concomitant]

REACTIONS (5)
  - CONDITION AGGRAVATED [None]
  - DEPRESSION [None]
  - FRACTURE [None]
  - MULTIPLE INJURIES [None]
  - SUICIDE ATTEMPT [None]
